FAERS Safety Report 6007718-8 (Version None)
Quarter: 2008Q4

REPORT INFORMATION
  Report Type: 
  Country: None (occurrence: None)
  Receive Date: 20081217
  Receipt Date: 20080521
  Transmission Date: 20090506
  Serious: No
  Sender: FDA-Public Use
  Company Number: US-ASTRAZENECA-2008UW10376

PATIENT
  Age: 56 Year
  Sex: Female

DRUGS (2)
  1. CRESTOR [Suspect]
     Indication: BLOOD CHOLESTEROL INCREASED
     Route: 048
     Dates: start: 20080512
  2. CELEBREX [Concomitant]

REACTIONS (3)
  - CONTUSION [None]
  - HEADACHE [None]
  - NASOPHARYNGITIS [None]
